FAERS Safety Report 23913050 (Version 1)
Quarter: 2024Q2

REPORT INFORMATION
  Report Type: Spontaneous
  Country: PL (occurrence: PL)
  Receive Date: 20240529
  Receipt Date: 20240529
  Transmission Date: 20240716
  Serious: Yes (Hospitalization)
  Sender: FDA-Public Use
  Company Number: PL-BoehringerIngelheim-2024-BI-028964

PATIENT
  Age: 65 Year
  Sex: Male

DRUGS (2)
  1. OFEV [Suspect]
     Active Substance: NINTEDANIB
     Indication: Systemic sclerosis pulmonary
     Dosage: THE PATIENT ENROLLED TO THE TREATMENT WITH NINTEDANIB WITHIN THE DRUG PROGRAM B.135.
     Dates: start: 202211, end: 202309
  2. OFEV [Suspect]
     Active Substance: NINTEDANIB
     Dates: start: 202310, end: 202404

REACTIONS (16)
  - Exercise tolerance decreased [Unknown]
  - Hypophagia [Unknown]
  - Productive cough [Unknown]
  - Pyrexia [Unknown]
  - Dyspnoea at rest [Unknown]
  - Renal injury [Unknown]
  - C-reactive protein increased [Unknown]
  - Klebsiella infection [Unknown]
  - Exercise tolerance decreased [Unknown]
  - Diarrhoea [Unknown]
  - Renal injury [Unknown]
  - Inflammatory marker increased [Unknown]
  - Haematuria [Unknown]
  - Renal failure [Unknown]
  - Coronary arterial stent insertion [Unknown]
  - Lymphadenopathy mediastinal [Unknown]

NARRATIVE: CASE EVENT DATE: 20230901
